FAERS Safety Report 6715156-5 (Version None)
Quarter: 2010Q2

REPORT INFORMATION
  Report Type: 
  Country: None (occurrence: None)
  Receive Date: 20100507
  Receipt Date: 20100429
  Transmission Date: 20101027
  Serious: Yes (Other)
  Sender: FDA-Public Use
  Company Number: KR-JNJFOC-20100500195

PATIENT
  Age: 54 Year
  Sex: Female

DRUGS (6)
  1. FENTANYL [Suspect]
     Indication: PROCTALGIA
     Route: 062
  2. TRAMADOL [Suspect]
     Indication: PROCTALGIA
     Route: 065
  3. HYDROMORPHONE HCL [Suspect]
     Indication: PROCTALGIA
     Dosage: A DAY
     Route: 065
  4. NORTRIPTYLINE HCL [Suspect]
     Indication: PROCTALGIA
     Route: 065
  5. PREGABALIN [Suspect]
     Indication: PROCTALGIA
     Route: 065
  6. MORPHINE [Suspect]
     Indication: PROCTALGIA
     Route: 065

REACTIONS (2)
  - DRUG INEFFECTIVE [None]
  - SUICIDE ATTEMPT [None]
